FAERS Safety Report 20054852 (Version 1)
Quarter: 2021Q4

REPORT INFORMATION
  Report Type: Report from Study
  Country: IE (occurrence: None)
  Receive Date: 20211110
  Receipt Date: 20211110
  Transmission Date: 20220303
  Serious: Yes (Other)
  Sender: FDA-Public Use
  Company Number: 2021A799257

PATIENT
  Age: 13728 Day
  Sex: Female

DRUGS (13)
  1. FASENRA [Suspect]
     Active Substance: BENRALIZUMAB
     Indication: Asthma
     Dosage: 30.0MG UNKNOWN
     Route: 058
     Dates: start: 20210907
  2. MONTELUKAST [Concomitant]
     Active Substance: MONTELUKAST SODIUM
  3. AZITHROMYCIN [Concomitant]
     Active Substance: AZITHROMYCIN
  4. ALDERONIC [Concomitant]
  5. DELTACORTRIL [Concomitant]
     Active Substance: PREDNISOLONE
  6. DELTACORTRIL [Concomitant]
     Active Substance: PREDNISOLONE
  7. ESOMEPRAZOLE [Concomitant]
     Active Substance: ESOMEPRAZOLE
  8. GLUCOPHAGE [Concomitant]
     Active Substance: METFORMIN HYDROCHLORIDE
  9. ALFOREX [Concomitant]
  10. ESCITALOPRAM [Concomitant]
     Active Substance: ESCITALOPRAM OXALATE
  11. FLUCONAZOLE [Concomitant]
     Active Substance: FLUCONAZOLE
  12. CALCIUM [Concomitant]
     Active Substance: CALCIUM
  13. LIQUID OXYGEN [Concomitant]
     Active Substance: OXYGEN
     Dosage: 2.0L CONTINUOUSLY

REACTIONS (1)
  - Sinusitis [Recovering/Resolving]

NARRATIVE: CASE EVENT DATE: 20211012
